FAERS Safety Report 7305123-5 (Version None)
Quarter: 2011Q1

REPORT INFORMATION
  Report Type: 
  Country: None (occurrence: None)
  Receive Date: 20110222
  Receipt Date: 20110211
  Transmission Date: 20110831
  Serious: Yes (Hospitalization)
  Sender: FDA-Public Use
  Company Number: US-CELGENEUS-163-21880-11012468

PATIENT
  Sex: Male

DRUGS (22)
  1. RANITIDINE [Concomitant]
     Route: 065
  2. SPIRIVA [Concomitant]
     Route: 065
  3. ULORIC [Concomitant]
     Route: 065
  4. FLOMAX [Concomitant]
     Route: 065
  5. PROAIR HFA [Concomitant]
     Route: 065
  6. POTASSIUM [Concomitant]
     Route: 065
  7. FLOVENT [Concomitant]
     Route: 065
  8. MUCINEX [Concomitant]
     Route: 065
  9. OXYCONTIN [Concomitant]
     Route: 065
  10. SEPTRA [Concomitant]
     Route: 065
  11. CYMBALTA [Concomitant]
     Route: 065
  12. DEXAMETHASONE [Concomitant]
     Route: 065
  13. LASIX [Concomitant]
     Route: 065
  14. METOPROLOL [Concomitant]
     Route: 065
  15. LIPITOR [Concomitant]
     Route: 065
  16. ASA [Concomitant]
     Route: 065
  17. REVLIMID [Suspect]
     Indication: MULTIPLE MYELOMA
     Route: 048
     Dates: start: 20101108
  18. LEVOXYL [Concomitant]
     Route: 065
  19. FORADIL [Concomitant]
     Route: 065
  20. AMLODIPINE [Concomitant]
     Route: 065
  21. TRAMADOL HCL [Concomitant]
     Route: 065
  22. CLONAZEPAM [Concomitant]
     Route: 065

REACTIONS (2)
  - TRACHEOBRONCHITIS [None]
  - CHRONIC OBSTRUCTIVE PULMONARY DISEASE [None]
